FAERS Safety Report 14294061 (Version 1)
Quarter: 2017Q4

REPORT INFORMATION
  Report Type: Spontaneous
  Country: IT (occurrence: IT)
  Receive Date: 20171217
  Receipt Date: 20171217
  Transmission Date: 20180321
  Serious: Yes (Other)
  Sender: FDA-Public Use
  Company Number: IT-CIPLA LTD.-2017IT25220

PATIENT

DRUGS (1)
  1. BUDESONIDE. [Suspect]
     Active Substance: BUDESONIDE
     Indication: LARYNGITIS
     Dosage: 2 MG, UNK
     Route: 055
     Dates: start: 20171107

REACTIONS (1)
  - Laryngeal dyspnoea [Recovering/Resolving]

NARRATIVE: CASE EVENT DATE: 20171109
